FAERS Safety Report 22607518 (Version 2)
Quarter: 2023Q2

REPORT INFORMATION
  Report Type: Spontaneous
  Country: EG (occurrence: EG)
  Receive Date: 20230616
  Receipt Date: 20230623
  Transmission Date: 20230721
  Serious: Yes (Other)
  Sender: FDA-Public Use
  Company Number: EG-NOVOPROD-1075546

PATIENT
  Age: 810 Month
  Sex: Female
  Weight: 60 kg

DRUGS (1)
  1. INSULIN HUMAN [Suspect]
     Active Substance: INSULIN HUMAN
     Indication: Diabetes mellitus
     Dosage: 50 IU, QD(30 IU/MORN. AND 20 IU/NIGHT)
     Route: 058

REACTIONS (1)
  - Cataract [Recovered/Resolved]
